FAERS Safety Report 5721522-7 (Version None)
Quarter: 2008Q2

REPORT INFORMATION
  Report Type: 
  Country: None (occurrence: None)
  Receive Date: 20080424
  Receipt Date: 20080414
  Transmission Date: 20081010
  Serious: Yes (Other)
  Sender: FDA-Public Use
  Company Number: 2008000828

PATIENT
  Age: 60 Year
  Sex: Male

DRUGS (6)
  1. ERLOTINIB (ERLOTINIB HCL) [Suspect]
     Indication: LUNG ADENOCARCINOMA
     Dosage: (150 MG, QD), ORAL
     Route: 048
     Dates: start: 20080220, end: 20080331
  2. TS-1 [Concomitant]
  3. IRINOTECAN HCL [Concomitant]
  4. MUCOSTA (REBAMIPIDE) [Concomitant]
  5. ETODOLAC [Concomitant]
  6. MAGNESIUM OXIDE (MAGNESIUM OXIDE) [Concomitant]

REACTIONS (4)
  - BONE MARROW FAILURE [None]
  - DRUG EFFECT DECREASED [None]
  - PULMONARY EMBOLISM [None]
  - PYREXIA [None]
